FAERS Safety Report 16232543 (Version 13)
Quarter: 2019Q4

REPORT INFORMATION
  Report Type: Report from Study
  Country: CH (occurrence: CH)
  Receive Date: 20190424
  Receipt Date: 20191224
  Transmission Date: 20200122
  Serious: Yes (Other)
  Sender: FDA-Public Use
  Company Number: CH-B.I. PHARMACEUTICALS,INC./RIDGEFIELD-2019-BI-002252

PATIENT
  Age: 78 Year
  Sex: Male
  Weight: 68 kg

DRUGS (17)
  1. SPIRICORT [Concomitant]
     Active Substance: PREDNISOLONE
     Route: 065
     Dates: end: 201901
  2. OFEV [Suspect]
     Active Substance: NINTEDANIB
     Indication: IDIOPATHIC PULMONARY FIBROSIS
     Route: 048
     Dates: start: 20190113, end: 20190214
  3. SPIRICORT [Concomitant]
     Active Substance: PREDNISOLONE
     Route: 065
     Dates: start: 20190301
  4. DYMISTA [Concomitant]
     Active Substance: AZELASTINE HYDROCHLORIDE\FLUTICASONE PROPIONATE
     Indication: PRODUCT USED FOR UNKNOWN INDICATION
     Route: 065
  5. OFEV [Suspect]
     Active Substance: NINTEDANIB
     Route: 048
     Dates: start: 20190411
  6. SPIRICORT [Concomitant]
     Active Substance: PREDNISOLONE
     Indication: COLLAGEN DISORDER
     Route: 065
     Dates: start: 201601
  7. ATROVENT [Concomitant]
     Active Substance: IPRATROPIUM BROMIDE
     Indication: PRODUCT USED FOR UNKNOWN INDICATION
     Dosage: DOSE:2ML/250MI
     Route: 065
  8. CALCIMAGON D3 [Concomitant]
     Active Substance: CALCIUM\CHOLECALCIFEROL
     Indication: OSTEOPENIA
     Dosage: DOSE: 800/1000
     Route: 065
  9. PANTOZOL [Concomitant]
     Active Substance: PANTOPRAZOLE SODIUM
     Route: 065
  10. FRESUBIN [CAFFEINE;CARBOHYDRATES [Concomitant]
     Indication: PRODUCT USED FOR UNKNOWN INDICATION
     Route: 065
  11. SPIRICORT [Concomitant]
     Active Substance: PREDNISOLONE
     Route: 065
     Dates: start: 201901, end: 20190228
  12. PANTOZOL [Concomitant]
     Active Substance: PANTOPRAZOLE SODIUM
     Indication: PRODUCT USED FOR UNKNOWN INDICATION
     Route: 065
  13. OFEV [Suspect]
     Active Substance: NINTEDANIB
     Dosage: 100 MG AM +150 MG EVENING
     Route: 048
     Dates: start: 20191106
  14. OFEV [Suspect]
     Active Substance: NINTEDANIB
     Route: 048
     Dates: start: 20190215, end: 20190315
  15. OFEV [Suspect]
     Active Substance: NINTEDANIB
     Route: 048
     Dates: start: 20191111
  16. SPIRICORT [Concomitant]
     Active Substance: PREDNISOLONE
     Route: 065
  17. SPIRICORT [Concomitant]
     Active Substance: PREDNISOLONE
     Route: 065

REACTIONS (13)
  - Increased appetite [Recovered/Resolved]
  - Fatigue [Not Recovered/Not Resolved]
  - Decreased appetite [Recovered/Resolved]
  - Weight decreased [Recovered/Resolved]
  - Diarrhoea [Recovered/Resolved]
  - Weight decreased [Recovered/Resolved]
  - Malaise [Unknown]
  - Dyspnoea exertional [Not Recovered/Not Resolved]
  - Respiratory distress [Recovered/Resolved]
  - Frequent bowel movements [Recovered/Resolved]
  - Cough [Not Recovered/Not Resolved]
  - Productive cough [Recovered/Resolved]
  - Abdominal pain upper [Recovered/Resolved]

NARRATIVE: CASE EVENT DATE: 20190115
